FAERS Safety Report 6865906 (Version 6)
Quarter: 2014Q1

REPORT INFORMATION
  Report Type: Spontaneous
  Country: US (occurrence: US)
  Receive Date: 20081224
  Receipt Date: 20140324
  Transmission Date: 20141002
  Serious: Yes (Hospitalization, Other)
  Sender: FDA-Public Use
  Company Number: US-JNJFOC-20081205108

PATIENT
  Age: 60 Year
  Sex: Female
  Weight: 65.77 kg

DRUGS (19)
  1. REMICADE [Suspect]
     Indication: PSORIASIS
     Route: 042
     Dates: start: 20080911
  2. REMICADE [Suspect]
     Indication: PSORIASIS
     Route: 042
     Dates: start: 20080805
  3. REMICADE [Suspect]
     Indication: PSORIASIS
     Route: 042
     Dates: start: 20081109, end: 20081109
  4. REMICADE [Suspect]
     Indication: PSORIATIC ARTHROPATHY
     Route: 042
     Dates: start: 20080911
  5. REMICADE [Suspect]
     Indication: PSORIATIC ARTHROPATHY
     Route: 042
     Dates: start: 20080805
  6. REMICADE [Suspect]
     Indication: PSORIATIC ARTHROPATHY
     Route: 042
     Dates: start: 20081109, end: 20081109
  7. PREMARIAN CREAM [Concomitant]
  8. ACTONEL [Concomitant]
     Indication: OSTEOPENIA
  9. ZETIA [Concomitant]
     Indication: BLOOD CHOLESTEROL
  10. NEXIUM [Concomitant]
     Indication: GASTROOESOPHAGEAL REFLUX DISEASE
  11. LEXAPRO [Concomitant]
     Indication: DEPRESSION
  12. CHANTIX [Concomitant]
     Indication: SMOKING CESSATION THERAPY
  13. MULTIVITAMIN [Concomitant]
     Indication: GENERAL PHYSICAL CONDITION
  14. VITAMIN C [Concomitant]
     Indication: GENERAL PHYSICAL CONDITION
  15. CALCIUM [Concomitant]
     Indication: GENERAL PHYSICAL CONDITION
  16. PREMARIN CREAM [Concomitant]
     Indication: HORMONE THERAPY
  17. ADVAIR [Concomitant]
  18. FOLIC ACID [Concomitant]
     Indication: PSORIATIC ARTHROPATHY
     Route: 065
  19. METHOTREXATE [Concomitant]
     Indication: PSORIASIS
     Route: 048

REACTIONS (17)
  - Hypotension [Recovered/Resolved]
  - Infusion related reaction [Recovered/Resolved]
  - Arthralgia [Recovered/Resolved]
  - Vomiting [Not Recovered/Not Resolved]
  - Pyrexia [Not Recovered/Not Resolved]
  - Dyspnoea [Recovered/Resolved]
  - Pain [Recovered/Resolved]
  - Weight bearing difficulty [Recovered/Resolved]
  - Joint stiffness [Recovered/Resolved]
  - Chest pain [Recovered/Resolved]
  - Upper respiratory tract infection [Unknown]
  - Oropharyngeal pain [Unknown]
  - Erythema [Recovered/Resolved]
  - Urticaria [Recovered/Resolved]
  - Nausea [Recovered/Resolved]
  - Myalgia [Unknown]
  - Flushing [Recovered/Resolved]
